FAERS Safety Report 20231279 (Version 1)
Quarter: 2021Q4

REPORT INFORMATION
  Report Type: Other
  Country: None (occurrence: JP)
  Receive Date: 20211227
  Receipt Date: 20211227
  Transmission Date: 20220303
  Serious: Yes (Hospitalization)
  Sender: FDA-Public Use
  Company Number: JP-Ajanta Pharma USA Inc.-2123392

PATIENT
  Age: 63 Year
  Sex: Male

DRUGS (4)
  1. METFORMIN HYDROCHLORIDE [Suspect]
     Active Substance: METFORMIN HYDROCHLORIDE
     Indication: Type 2 diabetes mellitus
  2. TENELIGLIPTIN [Concomitant]
     Active Substance: TENELIGLIPTIN
  3. ACARBOSE [Concomitant]
     Active Substance: ACARBOSE
  4. PIOGLITAZONE [Concomitant]
     Active Substance: PIOGLITAZONE

REACTIONS (1)
  - Encephalopathy [Recovered/Resolved]
